FAERS Safety Report 23065144 (Version 2)
Quarter: 2023Q4

REPORT INFORMATION
  Report Type: Spontaneous
  Country: US (occurrence: US)
  Receive Date: 20231013
  Receipt Date: 20231128
  Transmission Date: 20240110
  Serious: No
  Sender: FDA-Public Use
  Company Number: US-PFIZER INC-202300322279

PATIENT
  Age: 74 Year
  Sex: Female
  Weight: 59 kg

DRUGS (2)
  1. PAXLOVID [Suspect]
     Active Substance: NIRMATRELVIR\RITONAVIR
     Indication: COVID-19 treatment
     Dosage: 300 MG NIRMATRELVIR, RITONAVIR 100 MG PER TABLET, 3 PILLS AM, 3 PILLS PM
     Dates: start: 20231002, end: 20231004
  2. OMEPRAZOLE [Concomitant]
     Active Substance: OMEPRAZOLE
     Indication: Gastrooesophageal reflux disease
     Dosage: 20 MG

REACTIONS (6)
  - Discomfort [Unknown]
  - Burning sensation [Unknown]
  - Burn oesophageal [Unknown]
  - Abdominal discomfort [Unknown]
  - Pain [Unknown]
  - Taste disorder [Unknown]

NARRATIVE: CASE EVENT DATE: 20231001
